FAERS Safety Report 10089664 (Version 1)
Quarter: 2014Q2

REPORT INFORMATION
  Report Type: Spontaneous
  Country: FR (occurrence: None)
  Receive Date: 20140417
  Receipt Date: 20140417
  Transmission Date: 20141212
  Serious: No
  Sender: FDA-Public Use
  Company Number: 2014CP000052

PATIENT
  Age: 76 Year
  Sex: Male

DRUGS (12)
  1. PERFALGAN (PARACETAMOL) [Suspect]
     Dates: start: 20131229, end: 20131230
  2. HYOSCINE [Suspect]
     Indication: UPPER RESPIRATORY TRACT CONGESTION
     Dosage: 1MG; 1/72 HOUR;
     Dates: start: 20131227, end: 20131230
  3. TAHOR [Concomitant]
  4. PLAVIX [Concomitant]
  5. PARIET [Concomitant]
  6. SERESTA [Concomitant]
  7. CALCIUM CARBONATE [Concomitant]
  8. DIFFU-K [Concomitant]
  9. SMECTA [Concomitant]
  10. HYDROXYZINE HCL [Concomitant]
  11. ROCEPHINE [Concomitant]
  12. FRAGMINE [Concomitant]

REACTIONS (5)
  - Tongue oedema [None]
  - Tongue disorder [None]
  - Dry mouth [None]
  - Tongue discolouration [None]
  - Drug hypersensitivity [None]
